FAERS Safety Report 18915789 (Version 2)
Quarter: 2021Q1

REPORT INFORMATION
  Report Type: Spontaneous
  Country: PK (occurrence: PK)
  Receive Date: 20210219
  Receipt Date: 20210224
  Transmission Date: 20210420
  Serious: Yes (Other)
  Sender: FDA-Public Use
  Company Number: PK-PFIZER INC-2021149138

PATIENT
  Sex: Female

DRUGS (16)
  1. MEROPENEM. [Suspect]
     Active Substance: MEROPENEM
     Indication: SEPSIS
     Dosage: 40 MG/KG, 3X/DAY, MENINGITIC DOSES, FROM THE 22ND DOL
  2. COLISTIN [Concomitant]
     Active Substance: COLISTIN
     Indication: SEPSIS
     Dosage: 1.5 MG/KG, 2X/DAY, MAINTENANCE DOSE
  3. AMPICILLIN [Concomitant]
     Active Substance: AMPICILLIN
     Dosage: UNK, FROM THE SECOND DAY OF LIFE
  4. VANCOMYCIN [Concomitant]
     Active Substance: VANCOMYCIN
     Indication: NECROTISING COLITIS
     Dosage: 10 MG/KG, 1X/DAY, FROM THE FOURTH DOL
  5. COLISTIN [Concomitant]
     Active Substance: COLISTIN
     Indication: NECROTISING COLITIS
     Dosage: 5 MG/KG, LOADING DOSE, FROM THE FOURTH DOL
  6. PHENOBARBITONE [PHENOBARBITAL] [Concomitant]
     Active Substance: PHENOBARBITAL
     Dosage: UNK, LOADING DOSE, FROM THE 25TH DOL
  7. MEROPENEM. [Suspect]
     Active Substance: MEROPENEM
     Dosage: 20 MG/KG, SEPTIC DOSES
  8. GENTAMICIN [GENTAMICIN SULFATE] [Concomitant]
     Dosage: UNK
  9. VANCOMYCIN [Concomitant]
     Active Substance: VANCOMYCIN
     Indication: SEPSIS
     Dosage: 15 MG/KG, 2X/DAY, FROM THE 22ND DOL
  10. DIAZEPAM. [Concomitant]
     Active Substance: DIAZEPAM
     Indication: GENERALISED TONIC-CLONIC SEIZURE
     Dosage: SINGLE?DOSE, ON THE 25TH DOL
  11. VITAMIN K [PHYTOMENADIONE] [Concomitant]
     Indication: PROPHYLAXIS
     Dosage: 1 MG,  FROM THE FIRST DAY OF LIFE
  12. ACETAMINOPHEN. [Concomitant]
     Active Substance: ACETAMINOPHEN
     Dosage: UNK, FROM THE FIFTH DOL
  13. MEROPENEM. [Suspect]
     Active Substance: MEROPENEM
     Indication: NECROTISING COLITIS
     Dosage: 20 MG/KG, 2X/DAY, FROM THE FOURTH DOL
  14. CAFFEINE. [Concomitant]
     Active Substance: CAFFEINE
     Indication: INFANTILE APNOEA
     Dosage: 20 MG/KG, FROM THE FIRST DAY OF LIFE
  15. FLUCONAZOLE. [Concomitant]
     Active Substance: FLUCONAZOLE
     Indication: ANTIFUNGAL PROPHYLAXIS
     Dosage: UNK, FROM THE SECOND DAY OF LIFE
  16. PHENOBARBITONE [PHENOBARBITAL] [Concomitant]
     Active Substance: PHENOBARBITAL
     Dosage: UNK, MAINTENANCE DOSES

REACTIONS (4)
  - Anaemia neonatal [Recovered/Resolved]
  - Pancytopenia [Recovered/Resolved]
  - Neutropenia neonatal [Recovered/Resolved]
  - Thrombocytopenia neonatal [Recovered/Resolved]
